FAERS Safety Report 9383790 (Version 1)
Quarter: 2013Q3

REPORT INFORMATION
  Report Type: Spontaneous
  Country: AU (occurrence: AU)
  Receive Date: 20130704
  Receipt Date: 20130704
  Transmission Date: 20140515
  Serious: Yes (Other)
  Sender: FDA-Public Use
  Company Number: AU-ASTRAZENECA-2013SE48858

PATIENT
  Age: 66 Year
  Sex: Female

DRUGS (6)
  1. NEXIUM [Suspect]
     Route: 048
  2. METOPROLOL [Suspect]
     Route: 065
  3. ASPIRIN [Suspect]
     Route: 065
  4. ACLASTA [Suspect]
     Route: 041
  5. LIPITOR [Suspect]
     Route: 065
  6. NILOTINIB [Suspect]
     Route: 065

REACTIONS (9)
  - Myocardial infarction [Unknown]
  - Gamma-glutamyltransferase increased [Recovering/Resolving]
  - Glomerular filtration rate decreased [Recovering/Resolving]
  - Blood bilirubin increased [Recovering/Resolving]
  - Blood alkaline phosphatase increased [Recovering/Resolving]
  - Blood phosphorus decreased [Recovering/Resolving]
  - Chronic myeloid leukaemia (in remission) [Unknown]
  - Alanine aminotransferase increased [Recovering/Resolving]
  - Aspartate aminotransferase increased [Recovering/Resolving]
